FAERS Safety Report 5479836-4 (Version None)
Quarter: 2007Q4

REPORT INFORMATION
  Report Type: 
  Country: None (occurrence: None)
  Receive Date: 20071008
  Receipt Date: 20071003
  Transmission Date: 20080405
  Serious: Yes (Hospitalization)
  Sender: FDA-Public Use
  Company Number: HU-GENENTECH-248828

PATIENT
  Sex: Female
  Weight: 58 kg

DRUGS (4)
  1. RITUXIMAB [Suspect]
     Indication: MANTLE CELL LYMPHOMA
     Dosage: 600 MG, Q3W
     Route: 042
     Dates: start: 20070901
  2. CYCLOPHOSPHAMIDE [Suspect]
     Indication: MANTLE CELL LYMPHOMA
     Dosage: 1100 MG, UNK
     Dates: start: 20070901
  3. EPIRUBICIN [Suspect]
     Indication: MANTLE CELL LYMPHOMA
     Dosage: 110 MG, UNK
     Dates: start: 20070901
  4. VINCRISTINE [Suspect]
     Indication: MANTLE CELL LYMPHOMA
     Dosage: 2 MG, UNK
     Dates: start: 20070901

REACTIONS (1)
  - RENAL FAILURE ACUTE [None]
